FAERS Safety Report 22604510 (Version 1)
Quarter: 2023Q2

REPORT INFORMATION
  Report Type: Spontaneous
  Country: GB (occurrence: GB)
  Receive Date: 20230615
  Receipt Date: 20230615
  Transmission Date: 20230721
  Serious: Yes (Life-Threatening, Hospitalization, Other)
  Sender: FDA-Public Use
  Company Number: None

PATIENT
  Age: 91 Year
  Sex: Male

DRUGS (9)
  1. APIXABAN [Suspect]
     Active Substance: APIXABAN
     Indication: Product used for unknown indication
  2. BUMETANIDE [Concomitant]
     Active Substance: BUMETANIDE
  3. DIGOXIN [Concomitant]
     Active Substance: DIGOXIN
  4. FINASTERIDE [Concomitant]
     Active Substance: FINASTERIDE
  5. GLICLAZIDE [Concomitant]
     Active Substance: GLICLAZIDE
  6. LINAGLIPTIN [Concomitant]
     Active Substance: LINAGLIPTIN
  7. MESALAMINE [Concomitant]
     Active Substance: MESALAMINE
  8. OMEPRAZOLE [Concomitant]
     Active Substance: OMEPRAZOLE
  9. TRAZODONE [Concomitant]
     Active Substance: TRAZODONE HYDROCHLORIDE

REACTIONS (2)
  - Treatment failure [Recovered/Resolved]
  - Deep vein thrombosis [Unknown]
